FAERS Safety Report 6005741-0 (Version None)
Quarter: 2008Q4

REPORT INFORMATION
  Report Type: 
  Country: None (occurrence: None)
  Receive Date: 20081217
  Receipt Date: 20081215
  Transmission Date: 20090506
  Serious: No
  Sender: FDA-Public Use
  Company Number: US-BAYER-200840894NA

PATIENT
  Sex: Female

DRUGS (1)
  1. YAZ [Suspect]
     Indication: OVARIAN CYST
     Route: 048
     Dates: start: 20081124

REACTIONS (4)
  - BREAST TENDERNESS [None]
  - HEADACHE [None]
  - NO ADVERSE EVENT [None]
  - PREMENSTRUAL SYNDROME [None]
